FAERS Safety Report 9234502 (Version 4)
Quarter: 2013Q2

REPORT INFORMATION
  Report Type: Spontaneous
  Country: US (occurrence: US)
  Receive Date: 20130416
  Receipt Date: 20130628
  Transmission Date: 20140414
  Serious: Yes (Other)
  Sender: FDA-Public Use
  Company Number: US-PFIZER INC-2013117520

PATIENT
  Sex: Female

DRUGS (1)
  1. DILANTIN [Suspect]
     Indication: CONVULSION
     Dosage: UNK
     Dates: start: 1997

REACTIONS (2)
  - Drug ineffective [Unknown]
  - Drug level fluctuating [Unknown]
